FAERS Safety Report 7953173-8 (Version None)
Quarter: 2011Q4

REPORT INFORMATION
  Report Type: 
  Country: None (occurrence: None)
  Receive Date: 20111201
  Receipt Date: 20111122
  Transmission Date: 20120403
  Serious: Yes (Hospitalization, Other)
  Sender: FDA-Public Use
  Company Number: US-ASTRAZENECA-2011SE54190

PATIENT
  Age: 50 Year
  Sex: Female
  Weight: 54.4 kg

DRUGS (12)
  1. SEROQUEL [Suspect]
     Indication: SCHIZOPHRENIA
     Route: 048
  2. SEROQUEL [Suspect]
     Route: 048
  3. SEROQUEL [Suspect]
     Route: 048
  4. LITHIUM [Concomitant]
  5. RISPERDAL [Concomitant]
     Indication: SCHIZOPHRENIA
     Dosage: 0.25 TO 2 MG, DAILY
     Route: 048
     Dates: start: 20091010, end: 20101101
  6. SEROQUEL [Suspect]
     Indication: INSOMNIA
     Route: 048
  7. CELEXA [Concomitant]
     Indication: DEPRESSION
     Route: 048
     Dates: start: 20091010, end: 20101220
  8. SEROQUEL [Suspect]
     Route: 048
     Dates: start: 20100615, end: 20101029
  9. SEROQUEL [Suspect]
     Route: 048
     Dates: start: 20100615, end: 20101029
  10. AMBIEN [Concomitant]
     Indication: INSOMNIA
     Dates: start: 20090606, end: 20100621
  11. OXAZEPAM [Concomitant]
     Indication: ANXIETY
     Route: 048
     Dates: start: 20080409, end: 20110314
  12. DIAZEPAM [Concomitant]

REACTIONS (5)
  - SCHIZOAFFECTIVE DISORDER [None]
  - WEIGHT INCREASED [None]
  - OFF LABEL USE [None]
  - DRUG DOSE OMISSION [None]
  - SCHIZOPHRENIA [None]
